FAERS Safety Report 19097202 (Version 3)
Quarter: 2021Q2

REPORT INFORMATION
  Report Type: Report from Study
  Country: DE (occurrence: DE)
  Receive Date: 20210406
  Receipt Date: 20210419
  Transmission Date: 20210717
  Serious: Yes (Other)
  Sender: FDA-Public Use
  Company Number: DE-SHIRE-DE202023267

PATIENT
  Age: 16 Year
  Sex: Male
  Weight: 39.3 kg

DRUGS (4)
  1. IDURSULFASE [Suspect]
     Active Substance: IDURSULFASE
     Dosage: 24 MILLIGRAM, 1X/WEEK
     Route: 042
  2. IDURSULFASE [Suspect]
     Active Substance: IDURSULFASE
     Indication: MUCOPOLYSACCHARIDOSIS II
     Dosage: 24 MILLIGRAM, 1X/WEEK
     Route: 042
     Dates: start: 2015
  3. IDURSULFASE [Suspect]
     Active Substance: IDURSULFASE
     Dosage: 24 UNK
     Route: 042
     Dates: end: 20210401
  4. IDURSULFASE [Suspect]
     Active Substance: IDURSULFASE
     Dosage: 24 MILLIGRAM, 1X/WEEK
     Route: 042
     Dates: start: 2015, end: 2020

REACTIONS (6)
  - Pyrexia [Not Recovered/Not Resolved]
  - Respiratory arrest [Recovered/Resolved]
  - Productive cough [Recovered/Resolved]
  - Influenza like illness [Recovered/Resolved]
  - Pneumonitis [Recovered/Resolved]
  - Cough [Recovered/Resolved]

NARRATIVE: CASE EVENT DATE: 20200717
